FAERS Safety Report 8393000 (Version 2)
Quarter: 2013Q3

REPORT INFORMATION
  Report Type: Spontaneous
  Country: BR (occurrence: BR)
  Receive Date: 20120207
  Receipt Date: 20130729
  Transmission Date: 20140515
  Serious: Yes (Hospitalization)
  Sender: FDA-Public Use
  Company Number: BR-US-EMD SERONO, INC.-7110464

PATIENT
  Age: 30 Year
  Sex: Male

DRUGS (4)
  1. REBIF [Suspect]
     Indication: RELAPSING-REMITTING MULTIPLE SCLEROSIS
     Dates: start: 20020529
  2. NORIPURUM [Concomitant]
     Indication: PRODUCT USED FOR UNKNOWN INDICATION
  3. COMPLEX B                          /00653501/ [Concomitant]
     Indication: PRODUCT USED FOR UNKNOWN INDICATION
  4. NAPRIX A                           /01727701/ [Concomitant]
     Indication: HYPERTENSION

REACTIONS (7)
  - Renal failure chronic [Not Recovered/Not Resolved]
  - Blood pressure increased [Not Recovered/Not Resolved]
  - Dysphagia [Unknown]
  - Asthenia [Unknown]
  - Anaemia [Unknown]
  - Headache [Not Recovered/Not Resolved]
  - Fatigue [Unknown]
